FAERS Safety Report 7546982-0 (Version None)
Quarter: 2011Q2

REPORT INFORMATION
  Report Type: 
  Country: None (occurrence: None)
  Receive Date: 20110614
  Receipt Date: 20110609
  Transmission Date: 20111010
  Serious: Yes (Other)
  Sender: FDA-Public Use
  Company Number: GXKR2011DE01965

PATIENT
  Age: 48 Year
  Sex: Male

DRUGS (1)
  1. TAMSULOSIN HCL [Suspect]
     Dosage: 0.4 MG, UNK
     Route: 048

REACTIONS (2)
  - ATRIAL FIBRILLATION [None]
  - DIZZINESS POSTURAL [None]
